FAERS Safety Report 6648201-6 (Version None)
Quarter: 2010Q1

REPORT INFORMATION
  Report Type: 
  Country: None (occurrence: None)
  Receive Date: 20100324
  Receipt Date: 20100316
  Transmission Date: 20100710
  Serious: Yes (Other)
  Sender: FDA-Public Use
  Company Number: US-SANOFI-AVENTIS-2010SA004658

PATIENT
  Age: 87 Year
  Sex: Female
  Weight: 68.04 kg

DRUGS (1)
  1. LANTUS [Suspect]
     Dosage: DOSE:12 UNIT(S)
     Route: 058
     Dates: start: 20060101

REACTIONS (2)
  - VASCULAR DEMENTIA [None]
  - VISUAL IMPAIRMENT [None]
